FAERS Safety Report 7438605-6 (Version None)
Quarter: 2011Q2

REPORT INFORMATION
  Report Type: 
  Country: None (occurrence: None)
  Receive Date: 20110426
  Receipt Date: 20110425
  Transmission Date: 20111010
  Serious: Yes (Hospitalization)
  Sender: FDA-Public Use
  Company Number: US-PFIZER INC-2007097313

PATIENT
  Sex: Female
  Weight: 65.76 kg

DRUGS (30)
  1. CHANTIX [Suspect]
     Indication: SMOKING CESSATION THERAPY
     Dosage: 1 MG, 2X/DAY
     Route: 048
     Dates: start: 20070101
  2. CHANTIX [Suspect]
     Dosage: UNK
     Dates: start: 20081101, end: 20090101
  3. ROBAXIN [Concomitant]
     Dosage: UNK
  4. TRAZODONE HCL [Concomitant]
  5. PROMETHAZINE [Concomitant]
  6. METOPROLOL [Concomitant]
  7. METOCLOPRAMIDE [Concomitant]
  8. REQUIP [Concomitant]
     Dosage: 0.25 MG, 1X/DAY
     Route: 048
  9. PLAVIX [Concomitant]
     Indication: ARTERIAL OCCLUSIVE DISEASE
     Dosage: 75 MG, 1X/DAY
     Route: 048
  10. ACETYLSALICYLIC ACID SRT [Concomitant]
     Indication: ARTERIAL OCCLUSIVE DISEASE
     Dosage: 325 MG, 1X/DAY
     Route: 048
  11. FLUOXETINE [Concomitant]
  12. SIMVASTATIN [Concomitant]
     Dosage: 80 MG, 1X/DAY
     Route: 048
  13. POTASSIUM [Concomitant]
     Dosage: 20 MG, 1X/DAY
     Route: 048
  14. LORTAB [Concomitant]
  15. FLUDROCORTISONE [Concomitant]
  16. ZONISAMIDE [Concomitant]
     Dosage: 100 MG, UNK
     Route: 048
  17. ZETIA [Concomitant]
     Dosage: 10 MG, 1X/DAY
     Route: 048
  18. CALCIUM WITH VITAMIN D [Concomitant]
     Dosage: 500 MG, 1X/DAY
     Route: 048
  19. DEPAKOTE [Concomitant]
  20. VYTORIN [Concomitant]
  21. DIAZEPAM [Concomitant]
     Dosage: 10 MG, 1X/DAY
     Route: 048
  22. CELEXA [Concomitant]
     Dosage: 60 MG, 1X/DAY
     Route: 048
  23. LASIX [Concomitant]
  24. MONTELUKAST SODIUM [Concomitant]
     Dosage: 10 MG, 1X/DAY
     Route: 048
  25. RANITIDINE [Concomitant]
     Dosage: 300 MG, 1X/DAY
     Route: 048
  26. BUSPIRONE HCL [Concomitant]
  27. PHENYTOIN [Concomitant]
  28. LAMICTAL [Concomitant]
  29. GABAPENTIN [Concomitant]
     Dosage: 600 MG, 4X/DAY
     Route: 048
  30. VITAMIN D [Concomitant]
     Dosage: 50000 IU, WEEKLY
     Route: 048

REACTIONS (2)
  - DIZZINESS [None]
  - RENAL CANCER [None]
